FAERS Safety Report 4787308-5 (Version None)
Quarter: 2005Q3

REPORT INFORMATION
  Report Type: 
  Country: None (occurrence: None)
  Receive Date: 20050926
  Receipt Date: 20050804
  Transmission Date: 20060218
  Serious: No
  Sender: FDA-Public Use
  Company Number: 215958

PATIENT
  Age: 52 Year
  Sex: Female
  Weight: 75.3 kg

DRUGS (1)
  1. AVASTIN [Suspect]
     Indication: COLON CANCER METASTATIC
     Dosage: 5 MG/KG, Q2W, INTAVENOUS
     Route: 042
     Dates: start: 20050706

REACTIONS (1)
  - INJECTION SITE REACTION [None]
